FAERS Safety Report 12721534 (Version 1)
Quarter: 2016Q3

REPORT INFORMATION
  Report Type: Other
  Country: US (occurrence: US)
  Receive Date: 20160907
  Receipt Date: 20160907
  Transmission Date: 20161109
  Serious: No
  Sender: FDA-Public Use
  Company Number: US-COL_22137_2016

PATIENT
  Sex: Male

DRUGS (1)
  1. COLGATE TOTAL WHITENING [Suspect]
     Active Substance: SODIUM FLUORIDE\TRICLOSAN
     Indication: PRODUCT USED FOR UNKNOWN INDICATION
     Dosage: PEA SIZE AMOUNT/ BID/
     Route: 048
     Dates: start: 201601, end: 2016

REACTIONS (4)
  - Feeling abnormal [Recovered/Resolved]
  - Oral discomfort [Recovered/Resolved]
  - Swollen tongue [Recovered/Resolved]
  - Sensory disturbance [None]

NARRATIVE: CASE EVENT DATE: 201601
